FAERS Safety Report 8073154-6 (Version None)
Quarter: 2012Q1

REPORT INFORMATION
  Report Type: 
  Country: None (occurrence: None)
  Receive Date: 20120126
  Receipt Date: 20120113
  Transmission Date: 20120608
  Serious: Yes (Hospitalization)
  Sender: FDA-Public Use
  Company Number: US-ELI_LILLY_AND_COMPANY-US201112000953

PATIENT
  Sex: Female

DRUGS (5)
  1. LIPITOR [Concomitant]
     Dosage: UNK, UNKNOWN
     Route: 065
  2. DIURETICS [Concomitant]
     Dosage: UNK, UNKNOWN
     Route: 065
  3. FORTEO [Suspect]
     Indication: OSTEOPOROSIS
     Dosage: 20 UG, QD
     Route: 065
  4. TOPROL-XL [Concomitant]
     Dosage: UNK, UNKNOWN
     Route: 065
  5. FORTEO [Suspect]
     Dosage: 20 UG, QD
     Route: 065

REACTIONS (9)
  - FATIGUE [None]
  - ASTHENIA [None]
  - TRANSFUSION [None]
  - MOVEMENT DISORDER [None]
  - SWELLING [None]
  - ANAEMIA [None]
  - FEELING ABNORMAL [None]
  - PNEUMONIA [None]
  - ARTHRALGIA [None]
